FAERS Safety Report 18480196 (Version 1)
Quarter: 2020Q4

REPORT INFORMATION
  Report Type: Spontaneous
  Country: US (occurrence: US)
  Receive Date: 20201109
  Receipt Date: 20201109
  Transmission Date: 20210114
  Serious: Yes (Life-Threatening)
  Sender: FDA-Public Use
  Company Number: None

PATIENT
  Age: 64 Year
  Sex: Male
  Weight: 113 kg

DRUGS (1)
  1. ORBACTIV [Suspect]
     Active Substance: ORITAVANCIN

REACTIONS (4)
  - Pruritus [None]
  - Urticaria [None]
  - Blood pressure increased [None]
  - Erythema [None]

NARRATIVE: CASE EVENT DATE: 20191130
